FAERS Safety Report 10151179 (Version 3)
Quarter: 2014Q2

REPORT INFORMATION
  Report Type: Spontaneous
  Country: IT (occurrence: IT)
  Receive Date: 20140502
  Receipt Date: 20140529
  Transmission Date: 20141212
  Serious: Yes (Death, Other)
  Sender: FDA-Public Use
  Company Number: IT-PFIZER INC-2014118490

PATIENT
  Age: 70 Year
  Sex: Female
  Weight: 130 kg

DRUGS (16)
  1. SOLU-MEDROL [Suspect]
     Indication: BONE MARROW OEDEMA
     Dosage: 3900 MG, TOTAL
     Route: 040
     Dates: start: 20140418, end: 20140419
  2. URBASON [Suspect]
     Indication: BONE MARROW OEDEMA
     Dosage: 20 MG EVERY 12 HOURS
     Route: 042
     Dates: start: 20140417, end: 20140418
  3. ROCEFIN [Concomitant]
     Indication: ANTIBIOTIC PROPHYLAXIS
     Dosage: 2 G
     Route: 042
     Dates: start: 20140416, end: 20140418
  4. CLEXANE [Concomitant]
     Indication: THROMBOSIS PROPHYLAXIS
     Dosage: 4000 IU
     Route: 058
     Dates: start: 20140403, end: 20140416
  5. CLEXANE [Concomitant]
     Dosage: 8000 IU
     Route: 058
     Dates: start: 20140417, end: 20140417
  6. GABAPENTIN [Concomitant]
     Dosage: 300 MG CAPSULE AT 2 CAPSULE THREE TIMES DAILY
     Route: 048
  7. EUTIROX [Concomitant]
     Dosage: 125 UG, DAILY
  8. VALPRESSION [Concomitant]
     Dosage: 160 MG 1 CAPSULE DAILY
  9. ZOLOFT [Concomitant]
     Dosage: 50 MG 1 CAPSULE DAILY
  10. SPIRIVA [Concomitant]
     Dosage: 1 PUFF DAILY
  11. PERFALGAN [Concomitant]
     Indication: ANALGESIC THERAPY
     Dosage: 1 G
     Dates: start: 20140416
  12. MORPHINE [Concomitant]
     Indication: ANALGESIC THERAPY
     Dosage: 5 MG BOLUS FOLLOWED BY 25 MG
     Dates: start: 20140416
  13. TORADOL [Concomitant]
     Indication: ANALGESIC THERAPY
     Dosage: 90 MG
     Dates: start: 20140416
  14. ZANTAC [Concomitant]
     Indication: ANALGESIC THERAPY
     Dosage: 50 MG
     Dates: start: 20140416
  15. ONDANSETRON [Concomitant]
     Indication: ANALGESIC THERAPY
     Dosage: 4 MG IN 24 HOURS
     Dates: start: 20140416
  16. ANTRA [Concomitant]
     Dosage: 20 MG 1 TABLET
     Dates: start: 20140417

REACTIONS (4)
  - Rhabdomyolysis [Fatal]
  - Circulatory collapse [Fatal]
  - Acute respiratory failure [Fatal]
  - Renal failure [Fatal]
